FAERS Safety Report 21206783 (Version 11)
Quarter: 2023Q2

REPORT INFORMATION
  Report Type: Report from Study
  Country: DE (occurrence: DE)
  Receive Date: 20220812
  Receipt Date: 20230525
  Transmission Date: 20230721
  Serious: Yes (Hospitalization, Other)
  Sender: FDA-Public Use
  Company Number: DE-INSMED, INC.-2022-01988-DE

PATIENT
  Age: 38 Year
  Sex: Male

DRUGS (3)
  1. ARIKAYCE [Suspect]
     Active Substance: AMIKACIN
     Indication: Cystic fibrosis
     Dosage: 590 MILLIGRAM, QD
     Route: 055
     Dates: start: 20220714, end: 20220727
  2. ARIKAYCE [Suspect]
     Active Substance: AMIKACIN
     Indication: Mycobacterium abscessus infection
     Dosage: 590 MILLIGRAM, QOD
     Route: 055
     Dates: start: 20220728, end: 20220818
  3. ARIKAYCE [Suspect]
     Active Substance: AMIKACIN
     Dosage: 590 MILLIGRAM, QOD
     Route: 055
     Dates: start: 20230330, end: 20230425

REACTIONS (13)
  - Oxygen saturation decreased [Recovering/Resolving]
  - Heart rate increased [Recovered/Resolved]
  - Electrocardiogram QT prolonged [Not Recovered/Not Resolved]
  - Serratia infection [Not Recovered/Not Resolved]
  - Haemoptysis [Unknown]
  - Inflammatory marker increased [Not Recovered/Not Resolved]
  - Nasopharyngitis [Not Recovered/Not Resolved]
  - Sputum increased [Recovered/Resolved]
  - Throat irritation [Recovered/Resolved]
  - Chest discomfort [Not Recovered/Not Resolved]
  - Adverse event [Unknown]
  - Dyspnoea [Recovering/Resolving]
  - Off label use [Unknown]

NARRATIVE: CASE EVENT DATE: 20220101
